FAERS Safety Report 4719186-4 (Version None)
Quarter: 2005Q3

REPORT INFORMATION
  Report Type: 
  Country: None (occurrence: None)
  Receive Date: 20050720
  Receipt Date: 20050705
  Transmission Date: 20060218
  Serious: Yes (Death, Hospitalization)
  Sender: FDA-Public Use
  Company Number: US_0507119833

PATIENT
  Age: 26 Year
  Sex: Female

DRUGS (1)
  1. XIGRIS [Suspect]
     Dosage: UNK
     Route: 065

REACTIONS (1)
  - SUBARACHNOID HAEMORRHAGE [None]
